FAERS Safety Report 6403313-7 (Version None)
Quarter: 2009Q4

REPORT INFORMATION
  Report Type: 
  Country: None (occurrence: None)
  Receive Date: 20091016
  Receipt Date: 20091009
  Transmission Date: 20100525
  Serious: Yes (Other)
  Sender: FDA-Public Use
  Company Number: US-ASTRAZENECA-2009UW13470

PATIENT
  Age: 42 Year
  Sex: Female
  Weight: 145.1 kg

DRUGS (22)
  1. SEROQUEL [Suspect]
     Indication: BIPOLAR DISORDER
     Route: 048
     Dates: start: 20010901, end: 20090201
  2. SEROQUEL [Suspect]
     Indication: POST-TRAUMATIC STRESS DISORDER
     Route: 048
     Dates: start: 20010901, end: 20090201
  3. SEROQUEL [Suspect]
     Indication: INSOMNIA
     Route: 048
     Dates: start: 20010901, end: 20090201
  4. RISPERDAL [Concomitant]
  5. ZYPREXA [Concomitant]
  6. ABILIFY [Concomitant]
  7. GEODON [Concomitant]
  8. WELLBUTRIN [Concomitant]
  9. ZOLOFT [Concomitant]
  10. DEPAKOTE [Concomitant]
  11. CYMBALTA [Concomitant]
     Dates: start: 20060101
  12. TRAZODONE [Concomitant]
     Dates: start: 20090101
  13. TEGRETOL [Concomitant]
     Dates: start: 20090101
  14. LEXAPRO [Concomitant]
  15. EFFEXOR [Concomitant]
  16. REMERON [Concomitant]
  17. SERZONE [Concomitant]
  18. FLEXERIL [Concomitant]
  19. CELEXA [Concomitant]
  20. CLOZAPINE [Concomitant]
  21. LUNESTA [Concomitant]
  22. NARDIL [Concomitant]

REACTIONS (5)
  - BLOOD CHOLESTEROL INCREASED [None]
  - OBESITY [None]
  - RENAL FAILURE [None]
  - SLEEP APNOEA SYNDROME [None]
  - TYPE 2 DIABETES MELLITUS [None]
